FAERS Safety Report 4992805-3 (Version None)
Quarter: 2006Q2

REPORT INFORMATION
  Report Type: 
  Country: None (occurrence: None)
  Receive Date: 20060504
  Receipt Date: 20060425
  Transmission Date: 20061013
  Serious: Yes (Hospitalization)
  Sender: FDA-Public Use
  Company Number: JP-MERCK-0604USA04269

PATIENT
  Age: 61 Year
  Sex: Female

DRUGS (6)
  1. ZOCOR [Suspect]
     Indication: HYPERLIPIDAEMIA
     Route: 048
  2. ZOCOR [Suspect]
     Route: 048
     Dates: start: 20060320
  3. ZOCOR [Suspect]
     Route: 048
  4. [THERAPY UNSPECIFIED] [Concomitant]
     Route: 048
  5. AMLODIN [Concomitant]
     Route: 048
  6. ARTIST [Concomitant]
     Route: 048

REACTIONS (4)
  - DIZZINESS [None]
  - FALL [None]
  - HYPOTENSION [None]
  - TRANSIENT ISCHAEMIC ATTACK [None]
